FAERS Safety Report 6626138-6 (Version None)
Quarter: 2010Q1

REPORT INFORMATION
  Report Type: 
  Country: None (occurrence: None)
  Receive Date: 20100310
  Receipt Date: 20100225
  Transmission Date: 20100710
  Serious: Yes (Hospitalization, Other)
  Sender: FDA-Public Use
  Company Number: PHHY2010JP09513

PATIENT
  Age: 42 Year
  Sex: Female

DRUGS (6)
  1. CYCLOSPORINE [Suspect]
     Indication: CORD BLOOD TRANSPLANT THERAPY
     Dosage: UNK
     Dates: start: 20080601, end: 20080601
  2. FOSCARNET SODIUM [Suspect]
     Dosage: UNK
     Dates: end: 20080601
  3. CYCLOPHOSPHAMIDE [Concomitant]
     Dosage: 120 MG/KG
  4. IRRADIATION [Concomitant]
     Dosage: 12 GY
  5. TACROLIMUS [Concomitant]
  6. MYCOPHENOLATE MOFETIL [Concomitant]

REACTIONS (12)
  - ABNORMAL BEHAVIOUR [None]
  - ASCITES [None]
  - CHOLECYSTITIS [None]
  - CHRONIC GRAFT VERSUS HOST DISEASE [None]
  - HUMAN HERPESVIRUS 6 INFECTION [None]
  - IMMUNOSUPPRESSANT DRUG LEVEL INCREASED [None]
  - LIVER DISORDER [None]
  - ORGANISING PNEUMONIA [None]
  - PLEURAL EFFUSION [None]
  - RENAL IMPAIRMENT [None]
  - THROMBOTIC MICROANGIOPATHY [None]
  - TOXIC ENCEPHALOPATHY [None]
